FAERS Safety Report 18972390 (Version 1)
Quarter: 2021Q1

REPORT INFORMATION
  Report Type: Spontaneous
  Country: US (occurrence: US)
  Receive Date: 20210305
  Receipt Date: 20210305
  Transmission Date: 20210420
  Serious: Yes (Hospitalization)
  Sender: FDA-Public Use
  Company Number: US-ROCHE-2732642

PATIENT
  Sex: Male

DRUGS (11)
  1. SOMA [Concomitant]
     Active Substance: CARISOPRODOL
  2. PERCOCET [Concomitant]
     Active Substance: ACETAMINOPHEN\OXYCODONE HYDROCHLORIDE
  3. ALPRAZOLAM. [Concomitant]
     Active Substance: ALPRAZOLAM
  4. FLEXERIL [Concomitant]
     Active Substance: CYCLOBENZAPRINE HYDROCHLORIDE
  5. VALIUM [Suspect]
     Active Substance: DIAZEPAM
     Indication: BONE OPERATION
     Route: 065
     Dates: start: 1998
  6. VALIUM [Suspect]
     Active Substance: DIAZEPAM
     Indication: SPINAL FRACTURE
  7. OXYCONTIN [Concomitant]
     Active Substance: OXYCODONE HYDROCHLORIDE
  8. LIDOCAINE. [Concomitant]
     Active Substance: LIDOCAINE
  9. SUBOXONE [Concomitant]
     Active Substance: BUPRENORPHINE HYDROCHLORIDE\NALOXONE HYDROCHLORIDE
  10. METHADONE [Concomitant]
     Active Substance: METHADONE HYDROCHLORIDE
  11. MS CONTIN [Concomitant]
     Active Substance: MORPHINE SULFATE

REACTIONS (7)
  - Tooth injury [Unknown]
  - Endocrine disorder [Unknown]
  - Intentional product use issue [Unknown]
  - Off label use [Unknown]
  - Seizure [Unknown]
  - Dependence [Unknown]
  - Mental disorder [Unknown]

NARRATIVE: CASE EVENT DATE: 2003
